FAERS Safety Report 17637512 (Version 1)
Quarter: 2020Q2

REPORT INFORMATION
  Report Type: Spontaneous
  Country: CA (occurrence: CA)
  Receive Date: 20200407
  Receipt Date: 20200407
  Transmission Date: 20200713
  Serious: Yes (Life-Threatening, Hospitalization)
  Sender: FDA-Public Use
  Company Number: CA-STRIDES ARCOLAB LIMITED-2020SP004458

PATIENT
  Age: 52 Year
  Sex: Female

DRUGS (2)
  1. ACETAZOLAMIDE. [Suspect]
     Active Substance: ACETAZOLAMIDE
     Indication: IDIOPATHIC INTRACRANIAL HYPERTENSION
     Dosage: 2500 MILLIGRAM DAILY
     Route: 065
  2. ACETAZOLAMIDE. [Suspect]
     Active Substance: ACETAZOLAMIDE
     Dosage: TAPERED TO 500-750MG DAILY
     Route: 065

REACTIONS (12)
  - Cough [Unknown]
  - Off label use [Unknown]
  - Oxygen saturation decreased [Unknown]
  - Respiratory failure [Unknown]
  - Respiratory acidosis [Unknown]
  - Hypoventilation [Unknown]
  - Dyspnoea [Unknown]
  - Hypopnoea [Unknown]
  - Metabolic acidosis [Unknown]
  - Somnolence [Unknown]
  - Hypercapnia [Unknown]
  - Pyrexia [Unknown]
